FAERS Safety Report 25664861 (Version 2)
Quarter: 2025Q3

REPORT INFORMATION
  Report Type: Spontaneous
  Country: EU (occurrence: EU)
  Receive Date: 20250811
  Receipt Date: 20250812
  Transmission Date: 20251021
  Serious: Yes (Death, Hospitalization, Other)
  Sender: PFIZER
  Company Number: EU-PFIZER INC-PV202500096162

PATIENT
  Age: 71 Year
  Sex: Male

DRUGS (4)
  1. INOTUZUMAB OZOGAMICIN [Suspect]
     Active Substance: INOTUZUMAB OZOGAMICIN
     Indication: Acute lymphocytic leukaemia
     Dates: start: 20250312
  2. INOTUZUMAB OZOGAMICIN [Suspect]
     Active Substance: INOTUZUMAB OZOGAMICIN
  3. METHOTREXATE [Concomitant]
     Active Substance: METHOTREXATE
     Dates: end: 20250527
  4. ASPIRIN [Concomitant]
     Active Substance: ASPIRIN
     Dates: end: 20250527

REACTIONS (9)
  - Venoocclusive liver disease [Fatal]
  - Thrombocytopenia [Unknown]
  - Cachexia [Unknown]
  - Atypical pneumonia [Unknown]
  - General physical health deterioration [Unknown]
  - Diarrhoea [Unknown]
  - Bowel movement irregularity [Unknown]
  - Memory impairment [Unknown]
  - Off label use [Unknown]

NARRATIVE: CASE EVENT DATE: 20250312
